FAERS Safety Report 19246673 (Version 1)
Quarter: 2021Q2

REPORT INFORMATION
  Report Type: Spontaneous
  Country: US (occurrence: US)
  Receive Date: 20210512
  Receipt Date: 20210512
  Transmission Date: 20210717
  Serious: Yes (Hospitalization)
  Sender: FDA-Public Use
  Company Number: None

PATIENT
  Age: 63 Year
  Sex: Male
  Weight: 113 kg

DRUGS (1)
  1. CYTARABINE. [Suspect]
     Active Substance: CYTARABINE
     Dates: end: 20210416

REACTIONS (20)
  - Ventricular hypokinesia [None]
  - Myocardial ischaemia [None]
  - Hypomagnesaemia [None]
  - Generalised oedema [None]
  - Seizure like phenomena [None]
  - Acidosis [None]
  - Troponin increased [None]
  - Abdominal pain [None]
  - Septic shock [None]
  - Atrial fibrillation [None]
  - Cyanosis [None]
  - Hyperkeratosis [None]
  - Abdominal infection [None]
  - Acute kidney injury [None]
  - Febrile neutropenia [None]
  - Myocardial infarction [None]
  - Pneumonia [None]
  - Platelet count abnormal [None]
  - Atelectasis [None]
  - Hepatic ischaemia [None]

NARRATIVE: CASE EVENT DATE: 20210425
